FAERS Safety Report 7903382-9 (Version None)
Quarter: 2011Q4

REPORT INFORMATION
  Report Type: 
  Country: None (occurrence: None)
  Receive Date: 20111109
  Receipt Date: 20111031
  Transmission Date: 20120403
  Serious: Yes (Hospitalization)
  Sender: FDA-Public Use
  Company Number: TR-BAYER-2011-097576

PATIENT
  Age: 40 Year
  Sex: Male

DRUGS (4)
  1. DICLOFENAC POTASSIUM [Suspect]
     Indication: SUICIDE ATTEMPT
     Dosage: DAILY DOSE 1000 MG
  2. DEXTROMETHORPHAN HYDROBROMIDE [Suspect]
     Indication: SUICIDE ATTEMPT
     Dosage: DAILY DOSE 400 MG
  3. ACETAMINOPHEN [Suspect]
     Indication: SUICIDE ATTEMPT
     Dosage: DAILY DOSE 10000 MG
  4. PSEUDOEPHEDRINE HCL [Suspect]
     Indication: SUICIDE ATTEMPT
     Dosage: DAILY DOSE 600 MG

REACTIONS (2)
  - CONJUNCTIVAL HAEMORRHAGE [None]
  - NAUSEA [None]
